FAERS Safety Report 10176531 (Version 2)
Quarter: 2014Q2

REPORT INFORMATION
  Report Type: Spontaneous
  Country: NO (occurrence: NO)
  Receive Date: 20140516
  Receipt Date: 20140516
  Transmission Date: 20141212
  Serious: No
  Sender: FDA-Public Use
  Company Number: NO-ABBVIE-13P-122-1085044-00

PATIENT
  Age: 54 Year
  Sex: Female

DRUGS (1)
  1. HUMIRA [Suspect]
     Indication: GRANULOMATOSIS WITH POLYANGIITIS

REACTIONS (4)
  - Fatigue [Unknown]
  - Infection [Unknown]
  - Off label use [Unknown]
  - Sarcoidosis [Unknown]
